FAERS Safety Report 8386304-9 (Version None)
Quarter: 2012Q2

REPORT INFORMATION
  Report Type: 
  Country: None (occurrence: None)
  Receive Date: 20120525
  Receipt Date: 20120514
  Transmission Date: 20120825
  Serious: Yes (Other)
  Sender: FDA-Public Use
  Company Number: GB-MYLANLABS-2012S1009858

PATIENT
  Age: 19 Year
  Sex: Female

DRUGS (2)
  1. QUETIAPINE [Suspect]
     Indication: BIPOLAR DISORDER
     Route: 048
     Dates: start: 20120419, end: 20120427
  2. ARIPIPRAZOLE [Concomitant]
     Indication: PRODUCT USED FOR UNKNOWN INDICATION

REACTIONS (2)
  - HEADACHE [None]
  - BLINDNESS TRANSIENT [None]
